FAERS Safety Report 17032248 (Version 5)
Quarter: 2020Q4

REPORT INFORMATION
  Report Type: Spontaneous
  Country: US (occurrence: US)
  Receive Date: 20191114
  Receipt Date: 20201208
  Transmission Date: 20210113
  Serious: Yes (Other)
  Sender: FDA-Public Use
  Company Number: NVSC2019US018582

PATIENT
  Age: 56 Year
  Sex: Male

DRUGS (1)
  1. KYMRIAH [Suspect]
     Active Substance: TISAGENLECLEUCEL
     Indication: DIFFUSE LARGE B-CELL LYMPHOMA
     Dosage: UNK
     Route: 065
     Dates: start: 2016, end: 2016

REACTIONS (6)
  - Memory impairment [Unknown]
  - Neurotoxicity [Unknown]
  - Tremor [Unknown]
  - Herpes zoster [Unknown]
  - Lymphoedema [Unknown]
  - B-lymphocyte count decreased [Unknown]
